FAERS Safety Report 25607895 (Version 1)
Quarter: 2025Q3

REPORT INFORMATION
  Report Type: Spontaneous
  Country: JP (occurrence: JP)
  Receive Date: 20250725
  Receipt Date: 20250725
  Transmission Date: 20251021
  Serious: Yes (Other)
  Sender: DAIICHI
  Company Number: JP-DSJP-DSJ-2024-108155

PATIENT
  Age: 76 Year
  Sex: Male

DRUGS (3)
  1. EDOXABAN TOSYLATE [Suspect]
     Active Substance: EDOXABAN TOSYLATE
     Indication: Atrial fibrillation
     Route: 048
  2. EDOXABAN TOSYLATE [Suspect]
     Active Substance: EDOXABAN TOSYLATE
     Route: 048
  3. CILOSTAZOL [Concomitant]
     Active Substance: CILOSTAZOL
     Route: 048

REACTIONS (4)
  - Plasma cell myeloma [Unknown]
  - Colonic haematoma [Recovering/Resolving]
  - Cardiac failure [Unknown]
  - Primary amyloidosis [Unknown]
